FAERS Safety Report 5257239-5 (Version None)
Quarter: 2007Q1

REPORT INFORMATION
  Report Type: 
  Country: None (occurrence: None)
  Receive Date: 20070307
  Receipt Date: 20070302
  Transmission Date: 20070707
  Serious: Yes (Hospitalization, Other)
  Sender: FDA-Public Use
  Company Number: GB-JNJFOC-20070300778

PATIENT
  Sex: Female
  Weight: 48 kg

DRUGS (4)
  1. REMICADE [Suspect]
     Indication: RHEUMATOID ARTHRITIS
     Route: 042
  2. METHOTREXATE [Concomitant]
  3. FISH OIL [Concomitant]
  4. FOLATE [Concomitant]

REACTIONS (1)
  - BASAL CELL CARCINOMA [None]
